FAERS Safety Report 6534448-6 (Version None)
Quarter: 2009Q4

REPORT INFORMATION
  Report Type: 
  Country: None (occurrence: None)
  Receive Date: 20091228
  Receipt Date: 20090520
  Transmission Date: 20100525
  Serious: Yes (Other)
  Sender: FDA-Public Use
  Company Number: 20090189

PATIENT
  Age: 46 Year
  Sex: Female

DRUGS (3)
  1. VENOFER [Suspect]
     Dosage: 300 MG WEEKLY INTRAVENOUS
     Route: 042
     Dates: start: 20090402, end: 20090402
  2. VENOFER [Suspect]
     Dosage: 300 MG WEEKLY INTRAVENOUS
     Route: 042
     Dates: start: 20090410, end: 20090410
  3. BENADRYL [Concomitant]

REACTIONS (1)
  - ANAPHYLACTOID REACTION [None]
